FAERS Safety Report 8920806 (Version 1)
Quarter: 2012Q4

REPORT INFORMATION
  Report Type: 
  Country: US (occurrence: US)
  Receive Date: 20121122
  Receipt Date: 20121122
  Transmission Date: 20130627
  Serious: No
  Sender: FDA-Public Use
  Company Number: US-PFIZER INC-2012289610

PATIENT
  Age: 61 Year
  Sex: Male

DRUGS (1)
  1. INLYTA [Suspect]
     Indication: CARCINOMA KIDNEY
     Dosage: 7 mg, 2x/day ^one 5mg tablet with two 1mg tablets^
     Dates: start: 20120913

REACTIONS (1)
  - Diarrhoea [Unknown]
